FAERS Safety Report 20958571 (Version 3)
Quarter: 2023Q1

REPORT INFORMATION
  Report Type: Other
  Country: US (occurrence: None)
  Receive Date: 20220614
  Receipt Date: 20230316
  Transmission Date: 20230418
  Serious: No
  Sender: FDA-Public Use
  Company Number: US-ROCHE-2602998

PATIENT
  Age: 66 Year
  Sex: Female
  Weight: 113.50 kg

DRUGS (41)
  1. OCREVUS [Suspect]
     Active Substance: OCRELIZUMAB
     Indication: Relapsing-remitting multiple sclerosis
     Dosage: YES: 600 MG IV EVERY 6 MONTHS
     Route: 042
     Dates: start: 20171114
  2. OCREVUS [Suspect]
     Active Substance: OCRELIZUMAB
     Dosage: GOT A 500 MG DOSAGE EACH TIME, TOTAL OF 1000 MG
     Route: 042
  3. OCREVUS [Suspect]
     Active Substance: OCRELIZUMAB
     Dosage: IV SLOW DRIP, USUALLY 10 HOURS TO COMPLETE;ONGOING:YES:?START DATE: /MAY/2017
     Route: 042
     Dates: start: 2017
  4. OCREVUS [Suspect]
     Active Substance: OCRELIZUMAB
     Route: 042
     Dates: start: 20171114, end: 20210517
  5. OCREVUS [Suspect]
     Active Substance: OCRELIZUMAB
     Route: 042
  6. DALFAMPRIDINE [Concomitant]
     Active Substance: DALFAMPRIDINE
     Indication: Multiple sclerosis
     Dosage: ONGOING:YES
     Route: 048
     Dates: start: 2018
  7. GABAPENTIN [Concomitant]
     Active Substance: GABAPENTIN
     Indication: Pain
     Dosage: E
     Route: 048
     Dates: start: 2019
  8. GABAPENTIN [Concomitant]
     Active Substance: GABAPENTIN
     Indication: Muscle spasms
     Dosage: ONGOING:YES
  9. BACLOFEN [Concomitant]
     Active Substance: BACLOFEN
     Indication: Pain
     Dosage: ONGOING:NO
     Route: 048
  10. BACLOFEN [Concomitant]
     Active Substance: BACLOFEN
     Indication: Muscle spasms
     Dosage: 1-2 TABLETS THREE TIMES A DAY AS NEEDED:ONGOING:NO
     Route: 048
  11. VENLAFAXINE [Concomitant]
     Active Substance: VENLAFAXINE HYDROCHLORIDE
     Indication: Depression
     Dosage: ONGOING:YES
  12. ATORVASTATIN [Concomitant]
     Active Substance: ATORVASTATIN
     Indication: Lipids increased
     Dosage: ONGOING:YES
  13. METFORMIN [Concomitant]
     Active Substance: METFORMIN HYDROCHLORIDE
     Indication: Diabetes mellitus
     Dosage: ONGOING:YES
  14. AMITRIPTYLINE [Concomitant]
     Active Substance: AMITRIPTYLINE
     Indication: Depression
     Dosage: ONGOING:YES
  15. ACETAMINOPHEN\HYDROCODONE [Concomitant]
     Active Substance: ACETAMINOPHEN\HYDROCODONE
     Indication: Pain
     Dosage: 7.5 MG/325 MG 1-2 A DAY;ONGOING:YES
  16. LORAZEPAM [Concomitant]
     Active Substance: LORAZEPAM
     Indication: Panic attack
     Dosage: USUALLY TAKES 1 MG A DAY;ONGOING:YES
  17. LORAZEPAM [Concomitant]
     Active Substance: LORAZEPAM
     Indication: Meniere^s disease
  18. NYSTATIN [Concomitant]
     Active Substance: NYSTATIN
     Indication: Fungal infection
     Dosage: APPLIES UNDER BREAST;ONGOING:YES
  19. NOVOLOG [Concomitant]
     Active Substance: INSULIN ASPART
     Dosage: 20 UNIT NOT REPORTED?NOVOLOG 70-30 MIX PEN
  20. ZYRTEC [Concomitant]
     Active Substance: CETIRIZINE HYDROCHLORIDE
     Dosage: ONGOING:YES
  21. BENADRYL [Concomitant]
     Active Substance: DIPHENHYDRAMINE HYDROCHLORIDE
     Dosage: 1 EVERY 6 HOURS AS NEEDED:ONGOING:YES
  22. EMGALITY [Concomitant]
     Active Substance: GALCANEZUMAB-GNLM
     Indication: Migraine
     Dosage: ONGOING:YES
  23. MAGNESIUM OXIDE [Concomitant]
     Active Substance: MAGNESIUM OXIDE
     Dosage: ONGOING:YES
  24. ONDANSETRON [Concomitant]
     Active Substance: ONDANSETRON
     Indication: Nausea
     Dosage: EVERY 4 HOURS AS NEEDED;ONGOING:YES
     Route: 048
  25. ALBUTEROL [Concomitant]
     Active Substance: ALBUTEROL
     Indication: Hypersensitivity
     Dosage: 2 PUFFS EVERY 4-6 HOURS AS NEEDED;ONGOING:YES
  26. EPINEPHRINE [Concomitant]
     Active Substance: EPINEPHRINE
     Indication: Hypersensitivity
     Dosage: ONGOING:YES
  27. MELATONIN [Concomitant]
     Active Substance: MELATONIN
     Indication: Migraine
     Dosage: AT BEDTIME;ONGOING:YES
  28. RIBOFLAVIN [Concomitant]
     Active Substance: RIBOFLAVIN
     Indication: Migraine
  29. VITAMIN D3 [Concomitant]
     Active Substance: CHOLECALCIFEROL
     Dosage: 5000 UNIT NOT REPORTED?ONGOING:YES
  30. ZADITOR [Concomitant]
     Active Substance: KETOTIFEN FUMARATE
     Indication: Pruritus
     Dosage: 1 DROP IN EACH EYE AS NEEDED;ONGOING:YES
  31. ZADITOR [Concomitant]
     Active Substance: KETOTIFEN FUMARATE
     Indication: Hypersensitivity
  32. MAGNESIUM CITRATE [Concomitant]
     Active Substance: MAGNESIUM CITRATE
     Dosage: ONGOING:YES
  33. FLONASE [Concomitant]
     Active Substance: FLUTICASONE PROPIONATE
     Indication: Rhinitis
     Dosage: 2 SPRAYS IN EACH NOSTRIL;ONGOING:YES
  34. CITRUCEL [Concomitant]
     Active Substance: METHYLCELLULOSE (4000 MPA.S)
     Dosage: SINGLE DAILY DOSE;ONGOING:YES
  35. REGLAN [Concomitant]
     Active Substance: METOCLOPRAMIDE HYDROCHLORIDE
     Indication: Vomiting
     Dosage: 1 EVERY 6 HOURS AS NEEDED;ONGOING:YES
  36. REGLAN [Concomitant]
     Active Substance: METOCLOPRAMIDE HYDROCHLORIDE
     Indication: Nausea
  37. BOTOX [Concomitant]
     Active Substance: ONABOTULINUMTOXINA
  38. PREGABALIN [Concomitant]
     Active Substance: PREGABALIN
  39. AMPYRA [Concomitant]
     Active Substance: DALFAMPRIDINE
  40. SOLU-MEDROL [Concomitant]
     Active Substance: METHYLPREDNISOLONE SODIUM SUCCINATE
  41. TYLENOL [Concomitant]
     Active Substance: ACETAMINOPHEN

REACTIONS (11)
  - Pain [Not Recovered/Not Resolved]
  - Muscle spasms [Not Recovered/Not Resolved]
  - Gait disturbance [Unknown]
  - Infusion related reaction [Recovered/Resolved]
  - Fall [Unknown]
  - Occipital neuralgia [Not Recovered/Not Resolved]
  - Off label use [Unknown]
  - Asthenia [Unknown]
  - Migraine [Unknown]
  - Influenza [Recovered/Resolved]
  - Trigeminal neuralgia [Not Recovered/Not Resolved]

NARRATIVE: CASE EVENT DATE: 20171114
